FAERS Safety Report 9166472 (Version 1)
Quarter: 2013Q1

REPORT INFORMATION
  Report Type: Spontaneous
  Country: DE (occurrence: DE)
  Receive Date: 20130315
  Receipt Date: 20130315
  Transmission Date: 20140127
  Serious: Yes (Other)
  Sender: FDA-Public Use
  Company Number: DE-AMGEN-DEUSP2013016485

PATIENT
  Age: 62 Year
  Sex: Male

DRUGS (1)
  1. MIMPARA [Suspect]
     Indication: HYPERPARATHYROIDISM SECONDARY
     Dosage: UNK

REACTIONS (2)
  - Cardiac failure [Unknown]
  - Ventricular dysfunction [Unknown]
